FAERS Safety Report 9888214 (Version 2)
Quarter: 2014Q2

REPORT INFORMATION
  Report Type: Spontaneous
  Country: GB (occurrence: GB)
  Receive Date: 20140211
  Receipt Date: 20140401
  Transmission Date: 20141212
  Serious: Yes (Other)
  Sender: FDA-Public Use
  Company Number: GB-WATSON-2014-02175

PATIENT
  Age: 75 Year
  Sex: 0

DRUGS (2)
  1. CEFUROXIME SODIUM (UNKNOWN) [Suspect]
     Indication: PROPHYLAXIS
     Dosage: UNK. 0.1% INTRACAMERAL
     Route: 065
  2. ASPIRIN [Concomitant]
     Indication: PRODUCT USED FOR UNKNOWN INDICATION
     Dosage: UNK
     Route: 065

REACTIONS (4)
  - Visual acuity reduced [Not Recovered/Not Resolved]
  - Uveitis [Not Recovered/Not Resolved]
  - Anterior chamber inflammation [Unknown]
  - Corneal deposits [Not Recovered/Not Resolved]
